FAERS Safety Report 6764125-8 (Version None)
Quarter: 2010Q2

REPORT INFORMATION
  Report Type: 
  Country: None (occurrence: None)
  Receive Date: 20100610
  Receipt Date: 20100604
  Transmission Date: 20101027
  Serious: Yes (Hospitalization)
  Sender: FDA-Public Use
  Company Number: A0788116A

PATIENT
  Age: 51 Year
  Sex: Female
  Weight: 84 kg

DRUGS (7)
  1. AVANDIA [Suspect]
     Indication: DIABETES MELLITUS
     Dosage: 4MG PER DAY
     Route: 048
     Dates: start: 20040201, end: 20070529
  2. NEXIUM [Concomitant]
  3. ZOCOR [Concomitant]
  4. CELEBREX [Concomitant]
  5. EFFEXOR [Concomitant]
  6. GLIPIZIDE [Concomitant]
  7. NEURONTIN [Concomitant]

REACTIONS (3)
  - CARDIAC FAILURE CONGESTIVE [None]
  - CHEST PAIN [None]
  - MYOCARDIAL INFARCTION [None]
